FAERS Safety Report 24786484 (Version 1)
Quarter: 2024Q4

REPORT INFORMATION
  Report Type: Spontaneous
  Country: US (occurrence: US)
  Receive Date: 20241230
  Receipt Date: 20241230
  Transmission Date: 20250115
  Serious: No
  Sender: AIMMUNE
  Company Number: US-AIMMUNE THERAPEUTICS, INC.-2024AIMT00242

PATIENT
  Age: 17 Year
  Sex: Male
  Weight: 77.551 kg

DRUGS (5)
  1. PALFORZIA [Suspect]
     Active Substance: PEANUT
     Indication: Food allergy
     Dosage: IDE (0.5-6MG), ONCE
     Dates: start: 20231121, end: 20231121
  2. PALFORZIA [Suspect]
     Active Substance: PEANUT
     Dosage: 80 MG, 1X/DAY
     Dates: start: 20240131, end: 20240204
  3. PALFORZIA [Suspect]
     Active Substance: PEANUT
     Dosage: 40 MG, 1X/DAY
     Dates: start: 20240205, end: 20240206
  4. PALFORZIA [Suspect]
     Active Substance: PEANUT
     Dosage: 60 MG, 1X/DAY
     Dates: start: 20240207, end: 20240227
  5. PALFORZIA [Suspect]
     Active Substance: PEANUT
     Dosage: 80 MG, 1XDAY, DOSE RESUMED
     Dates: start: 20240228

REACTIONS (2)
  - Abdominal pain [Recovered/Resolved]
  - Dyspnoea [Recovered/Resolved]

NARRATIVE: CASE EVENT DATE: 20240202
